FAERS Safety Report 8979028 (Version 1)
Quarter: 2012Q4

REPORT INFORMATION
  Report Type: Spontaneous
  Country: US (occurrence: None)
  Receive Date: 20121218
  Receipt Date: 20121218
  Transmission Date: 20130627
  Serious: Yes (Other)
  Sender: FDA-Public Use
  Company Number: None

PATIENT
  Sex: Female
  Weight: 68.04 kg

DRUGS (1)
  1. TYSABRI [Suspect]
     Indication: MS
     Dosage: q 28 days
     Dates: start: 201205, end: 20121023

REACTIONS (8)
  - Malaise [None]
  - Arthralgia [None]
  - Stomatitis [None]
  - Glossodynia [None]
  - Tongue disorder [None]
  - Memory impairment [None]
  - Fatigue [None]
  - Drug ineffective [None]
